FAERS Safety Report 4714972-9 (Version None)
Quarter: 2005Q3

REPORT INFORMATION
  Report Type: 
  Country: None (occurrence: None)
  Receive Date: 20050713
  Receipt Date: 20050704
  Transmission Date: 20060218
  Serious: Yes (Death)
  Sender: FDA-Public Use
  Company Number: 2005035575

PATIENT
  Age: 60 Year
  Sex: Male
  Weight: 99 kg

DRUGS (9)
  1. BEXTRA [Suspect]
     Indication: NECK PAIN
     Dosage: 20 MG (20 MG, 1 IN 1 D), ORAL
     Route: 048
     Dates: start: 20040415, end: 20050217
  2. GLYCERYL TRINITRATE (GLYCERYL TRINITRATE) [Concomitant]
  3. BENDROFLUAZIDE (BENDROFLUMETHIAZIDE) [Concomitant]
  4. ASA 9ACETYLSALICYLIC ACID) [Concomitant]
  5. ATORVASTATIN CALCIUM [Concomitant]
  6. ATENOLOL [Concomitant]
  7. RAMIPRIL [Concomitant]
  8. CLOPIDOGREL BISULFATE [Concomitant]
  9. AMLODIPINE [Concomitant]

REACTIONS (4)
  - ANEURYSM RUPTURED [None]
  - MALAISE [None]
  - MYOCARDIAL INFARCTION [None]
  - SUBARACHNOID HAEMORRHAGE [None]
